FAERS Safety Report 9595245 (Version 2)
Quarter: 2013Q4

REPORT INFORMATION
  Report Type: Spontaneous
  Country: US (occurrence: US)
  Receive Date: 20131004
  Receipt Date: 20131004
  Transmission Date: 20140711
  Serious: No
  Sender: FDA-Public Use
  Company Number: US-PURDUE-USA-2012-0092619

PATIENT
  Sex: Female

DRUGS (3)
  1. BUTRANS [Suspect]
     Indication: PRODUCT USED FOR UNKNOWN INDICATION
     Dosage: 10 MCG, UNK
     Route: 062
     Dates: start: 20120901
  2. OXYCONTIN (NDA 22-272) [Concomitant]
     Indication: PRODUCT USED FOR UNKNOWN INDICATION
     Dosage: 20 MG, BID
     Route: 048
  3. OXYCONTIN (NDA 22-272) [Concomitant]
     Dosage: 10 MG, BID
     Route: 048

REACTIONS (6)
  - Drug ineffective [Unknown]
  - Inadequate analgesia [Unknown]
  - Drug effect decreased [Unknown]
  - Product adhesion issue [Unknown]
  - Malaise [Unknown]
  - Tremor [Unknown]
